FAERS Safety Report 14844434 (Version 2)
Quarter: 2018Q2

REPORT INFORMATION
  Report Type: Spontaneous
  Country: US (occurrence: US)
  Receive Date: 20180503
  Receipt Date: 20180620
  Transmission Date: 20180711
  Serious: Yes (Death, Hospitalization, Other)
  Sender: FDA-Public Use
  Company Number: US-GLAXOSMITHKLINE-US2018077557

PATIENT
  Age: 44 Year
  Sex: Female

DRUGS (3)
  1. VENTOLIN HFA [Suspect]
     Active Substance: ALBUTEROL SULFATE
     Indication: ASTHMA
     Dosage: UNK UNK, QD
     Route: 055
  2. ALBUTEROL. [Suspect]
     Active Substance: ALBUTEROL
     Indication: ASTHMA
  3. VIOXX [Concomitant]
     Active Substance: ROFECOXIB

REACTIONS (14)
  - Colon cancer [Fatal]
  - Ill-defined disorder [Unknown]
  - Impaired work ability [Unknown]
  - Dyspnoea [Unknown]
  - Emergency care examination [Unknown]
  - Asthma [Unknown]
  - Cardiovascular disorder [Unknown]
  - Drug ineffective [Unknown]
  - Lung disorder [Unknown]
  - Loss of personal independence in daily activities [Unknown]
  - Device malfunction [Unknown]
  - Injury [Unknown]
  - Steroid therapy [Unknown]
  - Blood pressure fluctuation [Unknown]

NARRATIVE: CASE EVENT DATE: 20030410
